FAERS Safety Report 23938631 (Version 1)
Quarter: 2024Q2

REPORT INFORMATION
  Report Type: Spontaneous
  Country: US (occurrence: None)
  Receive Date: 20240604
  Receipt Date: 20240604
  Transmission Date: 20240716
  Serious: Yes (Life-Threatening)
  Sender: FDA-Public Use
  Company Number: None

PATIENT
  Age: 46 Year
  Sex: Female
  Weight: 76.2 kg

DRUGS (2)
  1. MIRCERA [Suspect]
     Active Substance: METHOXY POLYETHYLENE GLYCOL-EPOETIN BETA
     Indication: Nephrogenic anaemia
     Dosage: 75 UG EVERY 4 WEEKS INTRAVENOUS?
     Route: 042
     Dates: start: 20240430, end: 20240528
  2. Venofer 100mg IVP [Concomitant]
     Dates: start: 20240326

REACTIONS (6)
  - Dialysis [None]
  - Blood pressure increased [None]
  - Heart rate increased [None]
  - Loss of consciousness [None]
  - Foaming at mouth [None]
  - Pulse absent [None]

NARRATIVE: CASE EVENT DATE: 20240528
